FAERS Safety Report 5114137-5 (Version None)
Quarter: 2006Q3

REPORT INFORMATION
  Report Type: 
  Country: None (occurrence: None)
  Receive Date: 20060925
  Receipt Date: 20060620
  Transmission Date: 20061208
  Serious: Yes (Death, Life-Threatening, Hospitalization, Other)
  Sender: FDA-Public Use
  Company Number: PE-BRISTOL-MYERS SQUIBB COMPANY-13417274

PATIENT
  Age: 75 Year
  Sex: Male

DRUGS (12)
  1. CISPLATIN [Suspect]
     Indication: GASTRIC CANCER
     Route: 041
     Dates: start: 20060601, end: 20060601
  2. FLUOROURACIL [Suspect]
     Indication: GASTRIC CANCER
     Route: 041
     Dates: start: 20060601, end: 20060606
  3. DEXTROSE 5% [Concomitant]
     Indication: FLUID REPLACEMENT
     Route: 042
     Dates: start: 20060601, end: 20060606
  4. PALONOSETRON [Concomitant]
     Indication: ANTIEMETIC SUPPORTIVE CARE
     Route: 042
     Dates: start: 20060601, end: 20060601
  5. DEXAMETHASONE TAB [Concomitant]
     Indication: ANTIEMETIC SUPPORTIVE CARE
     Route: 042
     Dates: start: 20060601, end: 20060605
  6. MANNITOL [Concomitant]
     Indication: DIURETIC THERAPY
     Route: 042
     Dates: start: 20060601, end: 20060601
  7. FUROSEMIDE [Concomitant]
     Indication: DIURETIC THERAPY
     Route: 042
     Dates: start: 20060601, end: 20060601
  8. MAGNESIUM SULFATE [Concomitant]
     Indication: PROPHYLAXIS
     Route: 042
     Dates: start: 20060601, end: 20060601
  9. POTASSIUM CHLORIDE [Concomitant]
     Indication: FLUID REPLACEMENT
     Route: 042
     Dates: start: 20060601, end: 20060601
  10. SODIUM CHLORIDE [Concomitant]
     Indication: FLUID REPLACEMENT
     Route: 042
     Dates: start: 20060601, end: 20060601
  11. CAPTOPRIL [Concomitant]
     Indication: HYPERTENSION
     Route: 048
     Dates: start: 20000101
  12. ASPIRIN [Concomitant]
     Indication: HYPERTENSION
     Route: 048
     Dates: start: 20010101

REACTIONS (4)
  - LEUKOPENIA [None]
  - PLATELET COUNT DECREASED [None]
  - SEPTIC SHOCK [None]
  - STOMATITIS [None]
